FAERS Safety Report 25549060 (Version 1)
Quarter: 2025Q3

REPORT INFORMATION
  Report Type: Spontaneous
  Country: US (occurrence: None)
  Receive Date: 20250712
  Receipt Date: 20250712
  Transmission Date: 20251021
  Serious: Yes (Hospitalization)
  Sender: FDA-CTU
  Company Number: None

PATIENT
  Age: 57 Year
  Sex: Female
  Weight: 78 kg

DRUGS (3)
  1. CYTARABINE [Suspect]
     Active Substance: CYTARABINE
     Dates: end: 20250703
  2. SPRYCEL [Suspect]
     Active Substance: DASATINIB
     Dates: end: 20250707
  3. METHOTREXATE [Suspect]
     Active Substance: METHOTREXATE
     Dates: end: 20250630

REACTIONS (2)
  - Febrile neutropenia [None]
  - Platelet transfusion [None]

NARRATIVE: CASE EVENT DATE: 20250708
